FAERS Safety Report 7060215-3 (Version None)
Quarter: 2010Q4

REPORT INFORMATION
  Report Type: 
  Country: None (occurrence: None)
  Receive Date: 20101025
  Receipt Date: 20101014
  Transmission Date: 20110411
  Serious: Yes (Death, Congenital Anomaly)
  Sender: FDA-Public Use
  Company Number: US-MERCK-1009USA03227B1

PATIENT

DRUGS (3)
  1. ISENTRESS [Suspect]
     Route: 064
  2. INTELENCE [Suspect]
     Route: 064
  3. EPZICOM [Suspect]
     Route: 064

REACTIONS (3)
  - DRUG EXPOSURE DURING PREGNANCY [None]
  - INTRA-UTERINE DEATH [None]
  - PYELOCALIECTASIS [None]
